FAERS Safety Report 7479015-5 (Version None)
Quarter: 2011Q2

REPORT INFORMATION
  Report Type: 
  Country: None (occurrence: None)
  Receive Date: 20110511
  Receipt Date: 20110511
  Transmission Date: 20111010
  Serious: Yes (Hospitalization, Disabling, Other)
  Sender: FDA-Public Use
  Company Number: None

PATIENT
  Age: 70 Year
  Sex: Female
  Weight: 67.1324 kg

DRUGS (2)
  1. ADVAIR DISKUS 250/50 [Suspect]
     Indication: ASTHMA
     Dosage: ONE PUFF TWICE A DAY
     Dates: start: 20050101, end: 20110101
  2. ADVAIR DISKUS 250/50 [Suspect]
     Indication: CHRONIC OBSTRUCTIVE PULMONARY DISEASE
     Dosage: ONE PUFF TWICE A DAY
     Dates: start: 20050101, end: 20110101

REACTIONS (4)
  - OSTEOPOROSIS [None]
  - COMPLEX PARTIAL SEIZURES [None]
  - MACULAR DEGENERATION [None]
  - HYPERTENSION [None]
